FAERS Safety Report 10072195 (Version 1)
Quarter: 2014Q2

REPORT INFORMATION
  Report Type: Spontaneous
  Country: US (occurrence: None)
  Receive Date: 20140410
  Receipt Date: 20140410
  Transmission Date: 20141212
  Serious: Yes (Disabling)
  Sender: FDA-Public Use
  Company Number: None

PATIENT
  Age: 18 Year
  Sex: Male

DRUGS (1)
  1. ESCITALOPRAM [Suspect]
     Dosage: 1 TABLET, ONCE DAILY TAKEN BY MOUTH
     Route: 048
     Dates: start: 20120315, end: 20120430

REACTIONS (6)
  - Mouth ulceration [None]
  - Helicobacter gastritis [None]
  - Gastritis [None]
  - Colitis ulcerative [None]
  - Crohn^s disease [None]
  - Weight decreased [None]
